FAERS Safety Report 9115643 (Version 1)
Quarter: 2013Q1

REPORT INFORMATION
  Report Type: Spontaneous
  Country: DK (occurrence: None)
  Receive Date: 20130129
  Receipt Date: 20130129
  Transmission Date: 20140127
  Serious: No
  Sender: FDA-Public Use
  Company Number: 2013MA000758

PATIENT
  Age: 90 Year
  Sex: 0

DRUGS (4)
  1. MIRTAZAPINE TABLETS 30 MG (AMIDE) (MIRTAZAPINE) [Suspect]
     Indication: PRODUCT USED FOR UNKNOWN INDICATION
     Route: 048
     Dates: start: 20111205, end: 20121207
  2. LORAZEPAM (LORAZEPAM) [Suspect]
     Route: 048
     Dates: start: 20111208, end: 20121207
  3. TRITTICO [Suspect]
     Dosage: 75 MG QD, PO.
     Dates: start: 20110812, end: 20120712
  4. STILNOX [Suspect]
     Route: 048
     Dates: start: 20121205, end: 20121206

REACTIONS (2)
  - Confusional state [None]
  - Psychomotor hyperactivity [None]
